FAERS Safety Report 17773388 (Version 1)
Quarter: 2020Q2

REPORT INFORMATION
  Report Type: Report from Study
  Country: None (occurrence: US)
  Receive Date: 20200513
  Receipt Date: 20200513
  Transmission Date: 20200714
  Serious: Yes (Other)
  Sender: FDA-Public Use
  Company Number: US-ABBVIE-20K-163-3394936-00

PATIENT
  Sex: Female

DRUGS (1)
  1. ORILISSA [Suspect]
     Active Substance: ELAGOLIX SODIUM
     Indication: PRODUCT USED FOR UNKNOWN INDICATION
     Route: 048

REACTIONS (5)
  - Dysgeusia [Unknown]
  - Muscle spasms [Not Recovered/Not Resolved]
  - Pain [Recovering/Resolving]
  - Systemic lupus erythematosus [Unknown]
  - Mood swings [Not Recovered/Not Resolved]
